FAERS Safety Report 16937935 (Version 1)
Quarter: 2019Q4

REPORT INFORMATION
  Report Type: Other
  Country: IT (occurrence: IT)
  Receive Date: 20191018
  Receipt Date: 20191018
  Transmission Date: 20200122
  Serious: Yes (Life-Threatening)
  Sender: FDA-Public Use
  Company Number: IT-CHIESI USA, INC.-IT-2019CHI000386

PATIENT

DRUGS (1)
  1. CANGRELOR [Suspect]
     Active Substance: CANGRELOR
     Indication: PLATELET AGGREGATION
     Dosage: 46.5 MG, TOTAL
     Route: 042
     Dates: start: 20190530, end: 20190530

REACTIONS (2)
  - Graft thrombosis [Recovered/Resolved]
  - Acute myocardial infarction [Recovered/Resolved]

NARRATIVE: CASE EVENT DATE: 20190530
